FAERS Safety Report 8905577 (Version 5)
Quarter: 2013Q1

REPORT INFORMATION
  Report Type: Spontaneous
  Country: US (occurrence: US)
  Receive Date: 20121111
  Receipt Date: 20130206
  Transmission Date: 20140127
  Serious: Yes (Hospitalization, Disabling, Other)
  Sender: FDA-Public Use
  Company Number: PHEH2012US021935

PATIENT
  Age: 65 Year
  Sex: Female
  Weight: 51.8 kg

DRUGS (7)
  1. RECLAST [Suspect]
     Indication: OSTEOPOROSIS POSTMENOPAUSAL
     Dosage: 5MG/100ML ONCE EVERY 12 MONTHS
     Route: 042
     Dates: start: 20120823
  2. OXYCODONE / ACETAMINOPHEN [Concomitant]
  3. SULFAMETHOXAZOLE AND TRIMETHOPRIM [Concomitant]
  4. BACLOFEN [Concomitant]
     Indication: MUSCLE SPASMS
  5. OXYCONTIN [Concomitant]
  6. ZOLOFT [Concomitant]
     Dosage: 50 MG, QD
  7. MUPIROCIN [Concomitant]

REACTIONS (44)
  - Hemiparesis [Unknown]
  - Abasia [Unknown]
  - Muscular weakness [Not Recovered/Not Resolved]
  - Urinary tract infection [Unknown]
  - White blood cell count increased [Unknown]
  - Urine output decreased [Unknown]
  - Cerebrovascular disorder [Unknown]
  - Atrophy [Unknown]
  - Vertigo [Unknown]
  - Dizziness [Unknown]
  - Influenza like illness [Unknown]
  - Bone pain [Not Recovered/Not Resolved]
  - Malaise [Unknown]
  - Asthenia [Unknown]
  - Chills [Unknown]
  - Pain [Unknown]
  - Nausea [Unknown]
  - Pyrexia [Unknown]
  - Depression [Not Recovered/Not Resolved]
  - Anxiety [Not Recovered/Not Resolved]
  - Fibrin D dimer increased [Unknown]
  - Pancytopenia [Unknown]
  - Platelet count decreased [Unknown]
  - Hypotension [Unknown]
  - Blood pressure systolic increased [Unknown]
  - Dermatitis [Not Recovered/Not Resolved]
  - Staphylococcal skin infection [Unknown]
  - Blister [Unknown]
  - Scar [Unknown]
  - Skin lesion [Unknown]
  - Rash [Unknown]
  - Feeling abnormal [Unknown]
  - Chest pain [Unknown]
  - Movement disorder [Unknown]
  - Spinal pain [Unknown]
  - Tooth loss [Unknown]
  - Dysstasia [Unknown]
  - Gait disturbance [Unknown]
  - Arthralgia [Unknown]
  - Palpitations [Unknown]
  - Back pain [Unknown]
  - Dyspnoea [Unknown]
  - Pain in jaw [Unknown]
  - Headache [Unknown]
